FAERS Safety Report 7007357-6 (Version None)
Quarter: 2010Q3

REPORT INFORMATION
  Report Type: 
  Country: None (occurrence: None)
  Receive Date: 20100922
  Receipt Date: 20100915
  Transmission Date: 20110219
  Serious: Yes (Hospitalization)
  Sender: FDA-Public Use
  Company Number: US-SANOFI-AVENTIS-2010SA056261

PATIENT

DRUGS (1)
  1. MULTAQ [Suspect]
     Route: 048

REACTIONS (2)
  - CARDIAC FAILURE [None]
  - LIVER FUNCTION TEST ABNORMAL [None]
